FAERS Safety Report 4917770-6 (Version None)
Quarter: 2006Q1

REPORT INFORMATION
  Report Type: 
  Country: None (occurrence: None)
  Receive Date: 20060215
  Receipt Date: 20060205
  Transmission Date: 20060701
  Serious: Yes (Hospitalization, Other)
  Sender: FDA-Public Use
  Company Number: 2006017940

PATIENT
  Age: 55 Year
  Sex: Female
  Weight: 61.2356 kg

DRUGS (4)
  1. LIPITOR [Suspect]
     Indication: ILL-DEFINED DISORDER
     Dosage: 160 MG (80 MG, 2 IN 1 D), ORAL
     Route: 048
     Dates: start: 20060101, end: 20060204
  2. CRESTOR [Concomitant]
  3. NEXIUM [Concomitant]
  4. ALLEGRA [Concomitant]

REACTIONS (3)
  - PANCREATITIS ACUTE [None]
  - RENAL PAIN [None]
  - WRONG DRUG ADMINISTERED [None]
